FAERS Safety Report 15383589 (Version 5)
Quarter: 2018Q4

REPORT INFORMATION
  Report Type: Spontaneous
  Country: US (occurrence: US)
  Receive Date: 20180913
  Receipt Date: 20181025
  Transmission Date: 20190204
  Serious: No
  Sender: FDA-Public Use
  Company Number: US-ACTELION-A-US2018-178788

PATIENT
  Age: 43 Year
  Sex: Female

DRUGS (5)
  1. ORENITRAM [Concomitant]
     Active Substance: TREPROSTINIL
     Dosage: 0.75 MG, UNK
  2. SILDENAFIL. [Concomitant]
     Active Substance: SILDENAFIL
     Dosage: 20 MG, TID
     Dates: start: 20180831
  3. ORENITRAM [Concomitant]
     Active Substance: TREPROSTINIL
     Dosage: 1 MG, UNK
  4. OPSUMIT [Suspect]
     Active Substance: MACITENTAN
     Indication: PULMONARY ARTERIAL HYPERTENSION
     Dosage: 10 MG, QD
     Route: 048
     Dates: start: 20180831
  5. OPSUMIT [Suspect]
     Active Substance: MACITENTAN
     Dosage: UNK
     Route: 048
     Dates: start: 20180903

REACTIONS (13)
  - Headache [Unknown]
  - Pain [Unknown]
  - Back pain [Recovering/Resolving]
  - Abdominal pain upper [Not Recovered/Not Resolved]
  - Weight increased [Unknown]
  - Constipation [Not Recovered/Not Resolved]
  - Epistaxis [Unknown]
  - Nausea [Recovering/Resolving]
  - Flushing [Recovering/Resolving]
  - Abdominal distension [Not Recovered/Not Resolved]
  - Oropharyngeal pain [Unknown]
  - Diarrhoea [Recovering/Resolving]
  - Nasal congestion [Unknown]

NARRATIVE: CASE EVENT DATE: 201809
